FAERS Safety Report 18792521 (Version 1)
Quarter: 2021Q1

REPORT INFORMATION
  Report Type: Spontaneous
  Country: CN (occurrence: CN)
  Receive Date: 20210127
  Receipt Date: 20210127
  Transmission Date: 20210419
  Serious: Yes (Hospitalization)
  Sender: FDA-Public Use
  Company Number: CN-BAXTER-2021BAX001474

PATIENT
  Age: 69 Year
  Sex: Female
  Weight: 51 kg

DRUGS (9)
  1. ENDOXAN [Suspect]
     Active Substance: CYCLOPHOSPHAMIDE
     Indication: DIFFUSE LARGE B-CELL LYMPHOMA
     Dosage: CYCLOPHOSPHAMIDE 1.1 GRAM+NS 250ML?R?CHOP CHEMOTHERAPY
     Route: 041
     Dates: start: 20201021, end: 20201021
  2. 5% GLUCOSE  INJECTION [Suspect]
     Active Substance: DEXTROSE
     Indication: MEDICATION DILUTION
     Dosage: DOXORUBICIN LIPOSOME HYDROCHLORIDE 50 MG+ 5% GS
     Route: 041
     Dates: start: 20201021, end: 20201021
  3. 0.9% SODIUM CHLORIDE INJECTION [Suspect]
     Active Substance: SODIUM CHLORIDE
     Indication: MEDICATION DILUTION
     Dosage: RITUXIMAB 560 MG +NS 600ML
     Route: 041
     Dates: start: 20201021, end: 20201021
  4. PREDNISONE. [Suspect]
     Active Substance: PREDNISONE
     Indication: DIFFUSE LARGE B-CELL LYMPHOMA
     Dosage: R?CHOP CHEMOTHERAPY
     Route: 065
     Dates: start: 20201021
  5. 0.9% SODIUM CHLORIDE INJECTION [Suspect]
     Active Substance: SODIUM CHLORIDE
     Dosage: VINORELBINE 37 MG+NS 100ML
     Route: 041
     Dates: start: 20201021, end: 20201021
  6. 0.9% SODIUM CHLORIDE INJECTION [Suspect]
     Active Substance: SODIUM CHLORIDE
     Dosage: CYCLOPHOSPHAMIDE 1.1 GRAM+NS 250ML
     Route: 041
     Dates: start: 20201021, end: 20201021
  7. GAINUO [Suspect]
     Active Substance: VINORELBINE TARTRATE
     Indication: DIFFUSE LARGE B-CELL LYMPHOMA
     Dosage: VINORELBINE TARTRATE+NS 100 ML?R?CHOP CHEMOTHERAPY
     Route: 041
     Dates: start: 20201021, end: 20201021
  8. RITUXIMAB. [Suspect]
     Active Substance: RITUXIMAB
     Indication: DIFFUSE LARGE B-CELL LYMPHOMA
     Dosage: RITUXIMAB+NS 600 ML?R?CHOP CHEMOTHERAPY
     Route: 041
     Dates: start: 20201021, end: 20201021
  9. DOXORUBICIN HYDROCHLORIDE LIPOSOME [Suspect]
     Active Substance: DOXORUBICIN HYDROCHLORIDE
     Indication: DIFFUSE LARGE B-CELL LYMPHOMA
     Dosage: DOXORUBICIN LIPOSOME HYDROCHLORIDE +5% GS 250ML?R?CHOP CHEMOTHERAPY
     Route: 041
     Dates: start: 20201021, end: 20201021

REACTIONS (1)
  - Myelosuppression [Recovering/Resolving]

NARRATIVE: CASE EVENT DATE: 20201123
